FAERS Safety Report 5224119-0 (Version None)
Quarter: 2007Q1

REPORT INFORMATION
  Report Type: 
  Country: None (occurrence: None)
  Receive Date: 20070130
  Receipt Date: 20070119
  Transmission Date: 20070707
  Serious: Yes (Hospitalization)
  Sender: FDA-Public Use
  Company Number: DE-JNJFOC-20070104537

PATIENT
  Sex: Male
  Weight: 55 kg

DRUGS (1)
  1. CONCERTA [Suspect]
     Indication: DRUG USE FOR UNKNOWN INDICATION
     Dosage: THE PATIENT TOOK FIVE TABLETS
     Route: 048

REACTIONS (2)
  - HYPERTENSION [None]
  - SYNCOPE [None]
